FAERS Safety Report 20195069 (Version 1)
Quarter: 2021Q4

REPORT INFORMATION
  Report Type: Spontaneous
  Country: CA (occurrence: CA)
  Receive Date: 20211216
  Receipt Date: 20211216
  Transmission Date: 20220304
  Serious: Yes (Other)
  Sender: FDA-Public Use
  Company Number: CA-SAMSUNG BIOEPIS-SB-2021-28776

PATIENT
  Age: 33 Year
  Sex: Male
  Weight: 83 kg

DRUGS (2)
  1. INFLIXIMAB [Suspect]
     Active Substance: INFLIXIMAB
     Indication: Crohn^s disease
     Route: 042
  2. INFLIXIMAB [Suspect]
     Active Substance: INFLIXIMAB
     Indication: Ankylosing spondylitis
     Route: 042

REACTIONS (9)
  - Uveitis [Unknown]
  - Dizziness [Unknown]
  - Pain in extremity [Unknown]
  - Paraesthesia [Unknown]
  - Weight increased [Unknown]
  - Back pain [Unknown]
  - C-reactive protein increased [Unknown]
  - Condition aggravated [Unknown]
  - Off label use [Unknown]
